FAERS Safety Report 6099975-7 (Version None)
Quarter: 2009Q1

REPORT INFORMATION
  Report Type: 
  Country: None (occurrence: None)
  Receive Date: 20090303
  Receipt Date: 20090224
  Transmission Date: 20090719
  Serious: Yes (Hospitalization, Congenital Anomaly)
  Sender: FDA-Public Use
  Company Number: A0664385A

PATIENT
  Sex: Male

DRUGS (8)
  1. PAXIL [Suspect]
     Indication: DEPRESSION
     Dosage: 20MG PER DAY
     Dates: start: 20000606, end: 20010801
  2. LASIX [Concomitant]
     Indication: HEART DISEASE CONGENITAL
     Dates: start: 20010502, end: 20030101
  3. IRON SUPPLEMENT [Concomitant]
     Dates: start: 20010101, end: 20020101
  4. CHILDREN'S MULTI VIT [Concomitant]
     Dates: start: 20030101
  5. VITAMIN B SUPPLEMENT [Concomitant]
     Dates: start: 20030101
  6. VITAMIN TAB [Concomitant]
     Dates: start: 20000601, end: 20010701
  7. HISTUSSIN [Concomitant]
     Dates: start: 20000904
  8. BIAXIN [Concomitant]

REACTIONS (9)
  - ATRIAL SEPTAL DEFECT [None]
  - ATTENTION DEFICIT/HYPERACTIVITY DISORDER [None]
  - CARDIAC FAILURE CONGESTIVE [None]
  - DEVELOPMENTAL DELAY [None]
  - DRUG EXPOSURE DURING PREGNANCY [None]
  - HEART DISEASE CONGENITAL [None]
  - PULMONARY VALVE STENOSIS [None]
  - TRANSPOSITION OF THE GREAT VESSELS [None]
  - VENTRICULAR SEPTAL DEFECT [None]
